FAERS Safety Report 8260946-3 (Version None)
Quarter: 2012Q2

REPORT INFORMATION
  Report Type: 
  Country: None (occurrence: None)
  Receive Date: 20120405
  Receipt Date: 20120402
  Transmission Date: 20120825
  Serious: No
  Sender: FDA-Public Use
  Company Number: US-PFIZER INC-2012083568

PATIENT
  Sex: Male

DRUGS (3)
  1. ZOLOFT [Suspect]
     Dosage: 50 MG, UNK
  2. ZOLOFT [Suspect]
     Dosage: 75 MG, UNK
  3. ZOLOFT [Suspect]
     Dosage: UNK

REACTIONS (3)
  - PAIN IN EXTREMITY [None]
  - HYPOAESTHESIA [None]
  - DYSKINESIA [None]
